FAERS Safety Report 18061991 (Version 1)
Quarter: 2020Q3

REPORT INFORMATION
  Report Type: Spontaneous
  Country: EG (occurrence: EG)
  Receive Date: 20200723
  Receipt Date: 20200723
  Transmission Date: 20201103
  Serious: Yes (Other)
  Sender: FDA-Public Use
  Company Number: EG-HIKMA PHARMACEUTICALS USA INC.-EG-H14001-20-03377

PATIENT
  Age: 50 Year
  Sex: Female

DRUGS (2)
  1. GEMZAR [Suspect]
     Active Substance: GEMCITABINE HYDROCHLORIDE
     Indication: BLADDER CANCER
     Dosage: TWICE PER CYCLE IN DAY (1,8)
     Route: 042
     Dates: start: 20190718
  2. UNISTIN [Suspect]
     Active Substance: CISPLATIN
     Indication: BLADDER CANCER
     Dosage: TWICE PER CYCLE IN DAY (1,8)
     Route: 042
     Dates: start: 20190718

REACTIONS (2)
  - Pyrexia [Recovered/Resolved]
  - Anaemia [Recovered/Resolved]

NARRATIVE: CASE EVENT DATE: 20190718
